FAERS Safety Report 9179960 (Version 1)
Quarter: 2013Q1

REPORT INFORMATION
  Report Type: Report from Study
  Country: ZA (occurrence: ZA)
  Receive Date: 20130321
  Receipt Date: 20130321
  Transmission Date: 20140127
  Serious: Yes (Life-Threatening, Hospitalization, Disabling)
  Sender: FDA-Public Use
  Company Number: ZA-WATSON-2012-18215

PATIENT
  Age: 53 Year
  Sex: Male
  Weight: 90 kg

DRUGS (4)
  1. TRELSTAR (WATSON LABORATORIES) [Suspect]
     Indication: PROSTATE CANCER
     Dosage: 22.5 MG ONCE EVERY 6 MONTHS
     Route: 058
     Dates: start: 20120928, end: 20120928
  2. ADALAT [Concomitant]
     Indication: HYPERTENSION
     Dosage: 30MG DAILY
     Route: 065
     Dates: start: 20120921
  3. ARCOXIA [Concomitant]
     Indication: PAIN
     Dosage: 120 MG DAILY
     Route: 048
     Dates: start: 20120921, end: 20120923
  4. FLOMAX                             /00889901/ [Concomitant]
     Indication: URINARY RETENTION
     Dosage: 0.4 MG DAILY
     Route: 048
     Dates: start: 20120928, end: 20121010

REACTIONS (2)
  - Paraparesis [Recovered/Resolved with Sequelae]
  - Diabetic hyperglycaemic coma [Recovered/Resolved]
